FAERS Safety Report 9744710 (Version 2)
Quarter: 2014Q4

REPORT INFORMATION
  Report Type: Spontaneous
  Country: US (occurrence: US)
  Receive Date: 20131210
  Receipt Date: 20141203
  Transmission Date: 20150529
  Serious: No
  Sender: FDA-Public Use
  Company Number: US-SA-2013SA095915

PATIENT

DRUGS (1)
  1. RENVELA [Suspect]
     Active Substance: SEVELAMER CARBONATE
     Indication: PRODUCT USED FOR UNKNOWN INDICATION
     Dosage: DOSAGE:RENVELA 800 MG 2 TAB PER MEAL AND 1WITH SNACK
     Route: 048

REACTIONS (2)
  - Constipation [Recovered/Resolved]
  - Rash [Not Recovered/Not Resolved]
